FAERS Safety Report 26052976 (Version 1)
Quarter: 2025Q4

REPORT INFORMATION
  Report Type: Spontaneous
  Country: US (occurrence: US)
  Receive Date: 20251117
  Receipt Date: 20251117
  Transmission Date: 20260118
  Serious: Yes (Other)
  Sender: XERIS PHARMACEUTICALS
  Company Number: US-BRIAN CONNER SVP QUALITY AND CHIEF COMPLIANCE OFFICER-2025XER00291

PATIENT
  Sex: Female

DRUGS (5)
  1. RECORLEV [Suspect]
     Active Substance: LEVOKETOCONAZOLE
     Indication: Pituitary-dependent Cushing^s syndrome
     Dosage: 150 MG, 1X/DAY
     Route: 048
     Dates: start: 20250325, end: 20250325
  2. RECORLEV [Suspect]
     Active Substance: LEVOKETOCONAZOLE
     Dosage: 150 MG, 2X/DAY
     Route: 048
     Dates: start: 2025, end: 2025
  3. RECORLEV [Suspect]
     Active Substance: LEVOKETOCONAZOLE
     Dosage: 300 MG, 2X/DAY (AM AND PM)
     Route: 048
     Dates: start: 20250721, end: 2025
  4. RECORLEV [Suspect]
     Active Substance: LEVOKETOCONAZOLE
     Dosage: 2 TABLETS (300 MG), 2X/DAY (AM AND PM)
     Route: 048
     Dates: start: 2025
  5. INSULIN LISPRO [Concomitant]
     Active Substance: INSULIN LISPRO

REACTIONS (5)
  - Foot deformity [Not Recovered/Not Resolved]
  - Abscess limb [Not Recovered/Not Resolved]
  - Breast cancer [Not Recovered/Not Resolved]
  - Dyspepsia [Recovered/Resolved]
  - Urinary tract infection [Not Recovered/Not Resolved]

NARRATIVE: CASE EVENT DATE: 20250101
